FAERS Safety Report 7622425-3 (Version None)
Quarter: 2011Q3

REPORT INFORMATION
  Report Type: 
  Country: None (occurrence: None)
  Receive Date: 20110711
  Receipt Date: 20110627
  Transmission Date: 20111222
  Serious: Yes (Other)
  Sender: FDA-Public Use
  Company Number: DSA_47068_2011

PATIENT
  Age: 59 Year
  Sex: Male
  Weight: 100.2449 kg

DRUGS (7)
  1. METOPROLOL TARTRATE [Concomitant]
  2. NAPROXEN [Concomitant]
  3. RAMIPRIL [Concomitant]
  4. ATORVASTATIN CALCIUM [Concomitant]
  5. METFORMIN [Concomitant]
  6. TIAZAC [Suspect]
     Indication: PRODUCT USED FOR UNKNOWN INDICATION
     Dosage: 360
  7. ASPIRIN [Concomitant]

REACTIONS (3)
  - SENSORY DISTURBANCE [None]
  - FLUSHING [None]
  - ABNORMAL DREAMS [None]
